FAERS Safety Report 21053044 (Version 1)
Quarter: 2022Q3

REPORT INFORMATION
  Report Type: Spontaneous
  Country: US (occurrence: None)
  Receive Date: 20220707
  Receipt Date: 20220707
  Transmission Date: 20221026
  Serious: Yes (Hospitalization)
  Sender: FDA-Public Use
  Company Number: None

PATIENT
  Age: 55 Year
  Sex: Female

DRUGS (1)
  1. CAPECITABINE [Suspect]
     Active Substance: CAPECITABINE
     Indication: Gastric cancer
     Dosage: OTHER FREQUENCY : 5 TIMES PER WEEK;?
     Route: 048
     Dates: start: 20220622

REACTIONS (3)
  - Gastrointestinal disorder [None]
  - Haematemesis [None]
  - Dehydration [None]

NARRATIVE: CASE EVENT DATE: 20220629
